FAERS Safety Report 9315373 (Version 3)
Quarter: 2013Q3

REPORT INFORMATION
  Report Type: Spontaneous
  Country: GB (occurrence: GB)
  Receive Date: 20130529
  Receipt Date: 20130917
  Transmission Date: 20140515
  Serious: Yes (Other)
  Sender: FDA-Public Use
  Company Number: GB-TEVA-407997ISR

PATIENT
  Age: 74 Year
  Sex: Male

DRUGS (3)
  1. DILTIAZEM [Suspect]
     Indication: CARDIAC DISORDER
     Dosage: 60 MILLIGRAM DAILY; MODIFIED RELEASE TABLET
     Route: 065
     Dates: start: 201304
  2. BISOPROLOL [Suspect]
     Indication: CARDIAC DISORDER
     Dates: start: 20130214
  3. VITAMINS [Concomitant]

REACTIONS (7)
  - Cutaneous lupus erythematosus [Unknown]
  - Photosensitivity reaction [Unknown]
  - Somnolence [Unknown]
  - Erythema [Unknown]
  - Skin mass [Unknown]
  - Rash [Unknown]
  - Skin exfoliation [Unknown]
